FAERS Safety Report 10076638 (Version 2)
Quarter: 2014Q2

REPORT INFORMATION
  Report Type: Spontaneous
  Country: US (occurrence: US)
  Receive Date: 20140414
  Receipt Date: 20140428
  Transmission Date: 20141212
  Serious: No
  Sender: FDA-Public Use
  Company Number: US-PFIZER INC-2014102365

PATIENT
  Age: 73 Year
  Sex: Male
  Weight: 99.8 kg

DRUGS (6)
  1. LIPITOR [Suspect]
     Indication: BLOOD CHOLESTEROL INCREASED
     Dosage: 80 MG, UNK
     Route: 048
  2. LIPITOR [Suspect]
     Dosage: 40 MG, DAILY
     Route: 048
  3. LIPITOR [Suspect]
     Dosage: (HALF OF 80 MG), DAILY
     Route: 048
  4. LIPITOR [Suspect]
     Dosage: UNK
  5. ATENOLOL [Concomitant]
     Dosage: UNK
  6. ASPIRIN [Concomitant]
     Dosage: UNK

REACTIONS (2)
  - Blood triglycerides increased [Unknown]
  - Musculoskeletal pain [Unknown]
